FAERS Safety Report 5045833-6 (Version None)
Quarter: 2006Q3

REPORT INFORMATION
  Report Type: 
  Country: None (occurrence: None)
  Receive Date: 20060710
  Receipt Date: 20060613
  Transmission Date: 20061208
  Serious: Yes (Life-Threatening)
  Sender: FDA-Public Use
  Company Number: ES-BRISTOL-MYERS SQUIBB COMPANY-13410196

PATIENT
  Age: 67 Year
  Sex: Female
  Weight: 50 kg

DRUGS (3)
  1. MAXIPIME [Suspect]
     Indication: CATHETER RELATED INFECTION
     Route: 042
     Dates: start: 20060530, end: 20060531
  2. CEFTAZIDIME [Suspect]
     Dates: start: 20060531
  3. CYCLOSPORINE [Concomitant]

REACTIONS (3)
  - COMA [None]
  - CONFUSIONAL STATE [None]
  - ENCEPHALITIS [None]
